FAERS Safety Report 5632140-3 (Version None)
Quarter: 2008Q1

REPORT INFORMATION
  Report Type: 
  Country: None (occurrence: None)
  Receive Date: 20080220
  Receipt Date: 19961231
  Transmission Date: 20080703
  Serious: Yes (Hospitalization)
  Sender: FDA-Public Use
  Company Number: US-MERCK-96080044

PATIENT
  Age: 26 Year
  Sex: Male

DRUGS (11)
  1. CRIXIVAN [Suspect]
     Indication: HIV INFECTION
     Route: 048
     Dates: start: 19960501, end: 19960101
  2. HYDROCODONE [Concomitant]
     Route: 065
  3. RETROVIR [Concomitant]
     Route: 065
  4. DAPSONE [Concomitant]
     Route: 065
  5. DIAZEPAM [Concomitant]
     Route: 065
  6. MYCOBUTIN [Concomitant]
     Route: 065
  7. PROZAC [Concomitant]
     Route: 065
  8. EPIVIR [Concomitant]
     Route: 065
  9. PRILOSEC [Concomitant]
     Route: 065
  10. DIFLUCAN [Concomitant]
     Route: 065
  11. CIPRO [Concomitant]
     Route: 065

REACTIONS (1)
  - IRRITABLE BOWEL SYNDROME [None]
